FAERS Safety Report 8063811-X (Version None)
Quarter: 2012Q1

REPORT INFORMATION
  Report Type: 
  Country: None (occurrence: None)
  Receive Date: 20120123
  Receipt Date: 20120117
  Transmission Date: 20120608
  Serious: Yes (Hospitalization)
  Sender: FDA-Public Use
  Company Number: PT-PERRIGO-12PT000336

PATIENT
  Age: 35 Year
  Sex: Female

DRUGS (9)
  1. TRAMADOL HCL [Concomitant]
     Indication: STILL'S DISEASE ADULT ONSET
     Dosage: UNKNOWN
     Route: 065
  2. IBUPROFEN [Suspect]
     Indication: MYALGIA
  3. DOXYCYCLINE [Concomitant]
     Indication: STILL'S DISEASE ADULT ONSET
     Dosage: UNK
     Route: 065
  4. IBUPROFEN [Suspect]
     Indication: PYREXIA
     Dosage: UNKNOWN
     Route: 065
  5. IBUPROFEN [Suspect]
     Indication: ARTHRALGIA
  6. IBUPROFEN [Suspect]
     Indication: OROPHARYNGEAL PAIN
  7. CEFTRIAXONE [Concomitant]
     Indication: STILL'S DISEASE ADULT ONSET
     Dosage: UNKNOWN
     Route: 065
  8. PREDNISOLONE [Concomitant]
     Indication: STILL'S DISEASE ADULT ONSET
     Dosage: 0.8MG/KG/DAY
     Route: 065
  9. PREDNISOLONE [Concomitant]
     Dosage: 1MG/KG/DAY

REACTIONS (1)
  - HEPATITIS [None]
